FAERS Safety Report 6378636-0 (Version None)
Quarter: 2009Q3

REPORT INFORMATION
  Report Type: 
  Country: None (occurrence: None)
  Receive Date: 20090928
  Receipt Date: 20090923
  Transmission Date: 20100115
  Serious: Yes (Hospitalization)
  Sender: FDA-Public Use
  Company Number: BR-ROCHE-557535

PATIENT
  Sex: Female
  Weight: 69 kg

DRUGS (7)
  1. RIVOTRIL [Suspect]
     Indication: BIPOLAR DISORDER
     Route: 048
     Dates: start: 20060101, end: 20080401
  2. RIVOTRIL [Suspect]
     Dosage: OTHER INDICATION: ANXIETY, INSOMNIA., DOSE: 20 MG/ML, STRENGTH: 2.5MG/ML.
     Route: 048
     Dates: start: 20080401
  3. TRAMADOL HYDROCHLORIDE [Suspect]
     Indication: PAIN
     Route: 048
     Dates: start: 20090601, end: 20090601
  4. DEPAKOTE ER [Concomitant]
     Indication: BIPOLAR DISORDER
     Route: 048
  5. TRILEPTAL [Concomitant]
     Indication: BIPOLAR DISORDER
     Route: 048
     Dates: end: 20090908
  6. TRILEPTAL [Concomitant]
     Route: 048
     Dates: start: 20090909
  7. ENALAPRIL MALEATE [Concomitant]
     Indication: HYPERTENSION
     Route: 048

REACTIONS (17)
  - AMNESIA [None]
  - CHILLS [None]
  - DEPENDENCE [None]
  - DIARRHOEA [None]
  - DIZZINESS [None]
  - EYELID FUNCTION DISORDER [None]
  - FEELING ABNORMAL [None]
  - HAEMATOMA [None]
  - HYPERHIDROSIS [None]
  - MEMORY IMPAIRMENT [None]
  - NAUSEA [None]
  - PAIN [None]
  - ROAD TRAFFIC ACCIDENT [None]
  - SCRATCH [None]
  - SOMNOLENCE [None]
  - URINARY INCONTINENCE [None]
  - VOMITING [None]
